FAERS Safety Report 6612074-8 (Version None)
Quarter: 2010Q1

REPORT INFORMATION
  Report Type: 
  Country: None (occurrence: None)
  Receive Date: 20100303
  Receipt Date: 20100223
  Transmission Date: 20100710
  Serious: Yes (Other)
  Sender: FDA-Public Use
  Company Number: B0635368A

PATIENT
  Age: 19 Year
  Sex: Female

DRUGS (4)
  1. COMBIVIR [Suspect]
     Indication: DRUG USE FOR UNKNOWN INDICATION
     Dosage: 2U PER DAY
  2. COMBIVIR [Suspect]
  3. KALETRA [Suspect]
     Indication: DRUG USE FOR UNKNOWN INDICATION
     Dosage: 2U PER DAY
  4. KALETRA [Suspect]
     Dosage: 4U PER DAY

REACTIONS (2)
  - INCORRECT DOSE ADMINISTERED [None]
  - INTRA-UTERINE DEATH [None]
